FAERS Safety Report 4451848-9 (Version None)
Quarter: 2004Q3

REPORT INFORMATION
  Report Type: 
  Country: None (occurrence: None)
  Receive Date: 20040915
  Receipt Date: 20040915
  Transmission Date: 20050211
  Serious: No
  Sender: FDA-Public Use
  Company Number: None

PATIENT
  Sex: Male
  Weight: 117.9352 kg

DRUGS (3)
  1. ZETIA [Suspect]
     Indication: HYPERLIPIDAEMIA
     Dosage: 10 MG / Q DAY/PO
     Route: 048
  2. GEMFIBROZIL [Concomitant]
  3. COLESTIPOL [Concomitant]

REACTIONS (1)
  - RASH PRURITIC [None]
